FAERS Safety Report 5758616-6 (Version None)
Quarter: 2008Q2

REPORT INFORMATION
  Report Type: 
  Country: None (occurrence: None)
  Receive Date: 20080604
  Receipt Date: 20080530
  Transmission Date: 20081010
  Serious: Yes (Other)
  Sender: FDA-Public Use
  Company Number: B0523497A

PATIENT
  Age: 61 Year
  Sex: Female

DRUGS (4)
  1. GLIMEPIRIDE + ROSIGLITAZONE [Suspect]
     Indication: DIABETES MELLITUS
     Dosage: 4MG PER DAY
     Route: 048
     Dates: start: 20070201, end: 20080331
  2. METFORMIN HCL [Concomitant]
     Indication: DIABETES MELLITUS
     Dosage: 850MG TWICE PER DAY
     Route: 048
  3. AMARYL [Concomitant]
     Indication: DRUG USE FOR UNKNOWN INDICATION
     Dosage: 4MG PER DAY
     Route: 048
     Dates: start: 20080331, end: 20080505
  4. MIDAZOLAM HCL [Concomitant]
     Route: 048
     Dates: start: 20070201

REACTIONS (2)
  - DYSPNOEA [None]
  - WEIGHT INCREASED [None]
